FAERS Safety Report 24285428 (Version 1)
Quarter: 2024Q3

REPORT INFORMATION
  Report Type: Spontaneous
  Country: US (occurrence: US)
  Receive Date: 20240905
  Receipt Date: 20240905
  Transmission Date: 20241016
  Serious: Yes (Death, Other)
  Sender: BAYER
  Company Number: US-BAYER-2024A126625

PATIENT
  Age: 44 Year
  Sex: Female

DRUGS (3)
  1. ASPIRIN [Suspect]
     Active Substance: ASPIRIN
     Indication: Subarachnoid haemorrhage
  2. TICAGRELOR [Suspect]
     Active Substance: TICAGRELOR
  3. HEPARIN [Suspect]
     Active Substance: HEPARIN SODIUM

REACTIONS (4)
  - Subarachnoid haemorrhage [Fatal]
  - Labelled drug-drug interaction issue [Fatal]
  - Unintentional use for unapproved indication [None]
  - Contraindicated product administered [None]
